FAERS Safety Report 10219307 (Version 1)
Quarter: 2014Q2

REPORT INFORMATION
  Report Type: Spontaneous
  Country: US (occurrence: None)
  Receive Date: 20140604
  Receipt Date: 20140604
  Transmission Date: 20141212
  Serious: No
  Sender: FDA-Public Use
  Company Number: None

PATIENT
  Age: 78 Year
  Sex: Female

DRUGS (1)
  1. FORTEO [Suspect]
     Dosage: INJECT 0.08 ML (20 MCG) INTO THE SKIN DAILY
     Dates: start: 20131107, end: 20140507

REACTIONS (1)
  - Abasia [None]
